FAERS Safety Report 9396801 (Version 2)
Quarter: 2013Q3

REPORT INFORMATION
  Report Type: Report from Study
  Country: CL (occurrence: CL)
  Receive Date: 20130712
  Receipt Date: 20130724
  Transmission Date: 20140515
  Serious: Yes (Hospitalization)
  Sender: FDA-Public Use
  Company Number: CL-BRISTOL-MYERS SQUIBB COMPANY-19026830

PATIENT
  Age: 67 Year
  Sex: Male

DRUGS (5)
  1. BLINDED: IPILIMUMAB [Suspect]
     Indication: NON-SMALL CELL LUNG CANCER
     Dosage: 1DF-148UNIT NOS,INT, LAST DOSE 23MAY13
     Route: 042
     Dates: start: 20130502
  2. CARBOPLATIN [Suspect]
     Indication: NON-SMALL CELL LUNG CANCER
     Dosage: 1DF:750-UNITS NOS
     Route: 042
     Dates: start: 20130318, end: 20130523
  3. PACLITAXEL [Suspect]
     Indication: NON-SMALL CELL LUNG CANCER
     Dosage: 1 DF: 331 UNIT NOS
     Route: 042
     Dates: start: 20130318, end: 20130523
  4. BLINDED: PLACEBO [Suspect]
     Indication: NON-SMALL CELL LUNG CANCER
     Dosage: INT 23MAY13
     Route: 042
     Dates: start: 20130502
  5. CHLORMADINONE [Concomitant]
     Dates: start: 201203

REACTIONS (2)
  - Diverticulitis [Recovered/Resolved]
  - Diarrhoea [Recovered/Resolved]
